FAERS Safety Report 16126127 (Version 1)
Quarter: 2019Q1

REPORT INFORMATION
  Report Type: Spontaneous
  Country: FR (occurrence: FR)
  Receive Date: 20190328
  Receipt Date: 20190328
  Transmission Date: 20190418
  Serious: Yes (Hospitalization)
  Sender: FDA-Public Use
  Company Number: FR-BRISTOL-MYERS SQUIBB COMPANY-BMS-2019-028865

PATIENT
  Age: 55 Year
  Sex: Female
  Weight: 62 kg

DRUGS (1)
  1. SPRYCEL [Suspect]
     Active Substance: DASATINIB
     Indication: CHRONIC MYELOID LEUKAEMIA
     Dosage: 100 MILLIGRAM, QD
     Route: 048
     Dates: start: 20171110, end: 20190201

REACTIONS (2)
  - Lymph node palpable [Recovered/Resolved]
  - Lymphoid tissue hyperplasia [Recovered/Resolved]

NARRATIVE: CASE EVENT DATE: 201808
